FAERS Safety Report 8297236-9 (Version None)
Quarter: 2012Q2

REPORT INFORMATION
  Report Type: 
  Country: None (occurrence: None)
  Receive Date: 20120416
  Receipt Date: 20120330
  Transmission Date: 20120825
  Serious: Yes (Other)
  Sender: FDA-Public Use
  Company Number: DSA_56051_2012

PATIENT
  Sex: Male

DRUGS (3)
  1. FLAGYL [Suspect]
     Indication: PRODUCT USED FOR UNKNOWN INDICATION
     Dosage: (7 MG/KG BID INTRAVENOUS (NOT OTHERWISE SPECIFIED)
     Route: 042
     Dates: start: 20120211, end: 20120213
  2. HYPNOVEL /00634103/ (HYPNOVEL - MIDAZOLAM HYDROCHLORIDE ) 30 UG/KG (NO [Suspect]
     Indication: PRODUCT USED FOR UNKNOWN INDICATION
     Dosage: (30 UG/KG QD INTRAVENOUS (NOT OTHERWISE SPEICIFED))
     Route: 042
     Dates: start: 20120211, end: 20120213
  3. FENTANYL [Suspect]
     Indication: PRODUCT USED FOR UNKNOWN INDICATION
     Dosage: (2 UG/KG QD INTRAVENOUS (NOT OTHERWISE SPECIFIED)
     Route: 042
     Dates: start: 20120211, end: 20120214

REACTIONS (1)
  - URINARY RETENTION [None]
